FAERS Safety Report 8223423-1 (Version None)
Quarter: 2012Q1

REPORT INFORMATION
  Report Type: 
  Country: None (occurrence: None)
  Receive Date: 20120316
  Receipt Date: 20101124
  Transmission Date: 20120608
  Serious: Yes (Other)
  Sender: FDA-Public Use
  Company Number: UKP10000124

PATIENT
  Age: 63 Year
  Sex: Male

DRUGS (1)
  1. ACTONEL [Suspect]
     Dosage: 30 MG, 1/DAY, ORAL
     Route: 048
     Dates: start: 20091101

REACTIONS (2)
  - RENAL FAILURE [None]
  - INCORRECT DRUG ADMINISTRATION DURATION [None]
